FAERS Safety Report 4789789-X (Version None)
Quarter: 2005Q4

REPORT INFORMATION
  Report Type: 
  Country: None (occurrence: None)
  Receive Date: 20051006
  Receipt Date: 20051003
  Transmission Date: 20060501
  Serious: Yes (Other)
  Sender: FDA-Public Use
  Company Number: US-GLAXOSMITHKLINE-A0576711A

PATIENT
  Age: 53 Year
  Sex: Female

DRUGS (6)
  1. ADVAIR DISKUS 100/50 [Suspect]
     Indication: ASTHMA
     Dosage: 1PUFF TWICE PER DAY
     Route: 055
  2. DIOVAN [Concomitant]
  3. PREVACID [Concomitant]
  4. FLONASE [Concomitant]
  5. CARDIZEM [Concomitant]
  6. ZYRTEC [Concomitant]

REACTIONS (6)
  - ASTHMA [None]
  - COUGH [None]
  - DYSGEUSIA [None]
  - DYSPNOEA [None]
  - PAINFUL RESPIRATION [None]
  - PHARMACEUTICAL PRODUCT COMPLAINT [None]
